FAERS Safety Report 25008736 (Version 2)
Quarter: 2025Q1

REPORT INFORMATION
  Report Type: Spontaneous
  Country: GB (occurrence: GB)
  Receive Date: 20250225
  Receipt Date: 20250319
  Transmission Date: 20250408
  Serious: No
  Sender: PFIZER
  Company Number: GB-PFIZER INC-PV202500014625

PATIENT
  Age: 3 Year
  Sex: Male

DRUGS (1)
  1. GENOTROPIN [Suspect]
     Active Substance: SOMATROPIN
     Indication: Growth hormone deficiency
     Dosage: 0.2MG/04MG ON ALTERNATE DAYS, DAILY
     Route: 058

REACTIONS (2)
  - Scratch [Recovered/Resolved]
  - Patient-device incompatibility [Unknown]
